FAERS Safety Report 12759905 (Version 2)
Quarter: 2016Q4

REPORT INFORMATION
  Report Type: Report from Study
  Country: US (occurrence: US)
  Receive Date: 20160919
  Receipt Date: 20161014
  Transmission Date: 20170207
  Serious: Yes (Disabling, Other)
  Sender: FDA-Public Use
  Company Number: US-GILEAD-2016-0232312

PATIENT
  Age: 73 Year
  Sex: Female
  Weight: 76.64 kg

DRUGS (1)
  1. LEDIPASVIR/SOFOSBUVIR [Suspect]
     Active Substance: LEDIPASVIR\SOFOSBUVIR
     Indication: CHRONIC HEPATITIS C
     Dosage: 1 DF, QD
     Route: 048
     Dates: start: 20150120, end: 20150705

REACTIONS (11)
  - Cough [Unknown]
  - Rhinorrhoea [Unknown]
  - Liver disorder [Unknown]
  - Hypoxia [Not Recovered/Not Resolved]
  - Lung disorder [Unknown]
  - Influenza like illness [Unknown]
  - Dyspnoea [Not Recovered/Not Resolved]
  - Malaise [Unknown]
  - Pulmonary toxicity [Unknown]
  - Pyrexia [Unknown]
  - Malaise [Unknown]

NARRATIVE: CASE EVENT DATE: 201507
